FAERS Safety Report 4293891-9 (Version None)
Quarter: 2004Q1

REPORT INFORMATION
  Report Type: 
  Country: None (occurrence: None)
  Receive Date: 20040211
  Receipt Date: 20040126
  Transmission Date: 20041129
  Serious: Yes (Hospitalization, Other)
  Sender: FDA-Public Use
  Company Number: US049679

PATIENT
  Age: 7 Year
  Sex: Female

DRUGS (5)
  1. ENBREL [Suspect]
     Indication: JUVENILE ARTHRITIS
     Dosage: 2 X 10 MG SC PER WEEK
     Route: 058
  2. METHOTREXATE [Concomitant]
  3. NAPROXEN [Concomitant]
  4. PREDNISONE [Concomitant]
  5. FOLIC ACID [Concomitant]

REACTIONS (6)
  - BLOOD BRAIN BARRIER DEFECT [None]
  - CONVULSION [None]
  - CSF OLIGOCLONAL BAND [None]
  - DEMYELINATION [None]
  - GASTROENTERITIS VIRAL [None]
  - NUCLEAR MAGNETIC RESONANCE IMAGING BRAIN ABNORMAL [None]
